FAERS Safety Report 12161010 (Version 1)
Quarter: 2016Q1

REPORT INFORMATION
  Report Type: Spontaneous
  Country: CN (occurrence: CN)
  Receive Date: 20160308
  Receipt Date: 20160308
  Transmission Date: 20160526
  Serious: Yes (Other)
  Sender: FDA-Public Use
  Company Number: CN-IGI LABORATORIES, INC.-1048820

PATIENT
  Age: 17 Year
  Sex: Female
  Weight: 85 kg

DRUGS (2)
  1. GLUCOSE [Suspect]
     Active Substance: DEXTROSE
     Route: 042
     Dates: start: 201602
  2. ZINACEF [Suspect]
     Active Substance: CEFUROXIME SODIUM
     Indication: PHARYNGEAL OPERATION
     Route: 042
     Dates: start: 201602

REACTIONS (4)
  - Dermatitis [Unknown]
  - Hyperpyrexia [Unknown]
  - Blister [Unknown]
  - Erythema [Unknown]
